FAERS Safety Report 4900526-8 (Version None)
Quarter: 2006Q1

REPORT INFORMATION
  Report Type: 
  Country: None (occurrence: None)
  Receive Date: 20060203
  Receipt Date: 20060201
  Transmission Date: 20060701
  Serious: Yes (Death, Hospitalization)
  Sender: FDA-Public Use
  Company Number: US-MERCK-0602USA00118

PATIENT
  Age: 85 Year
  Sex: Female

DRUGS (2)
  1. ZOCOR [Suspect]
     Indication: BLOOD CHOLESTEROL
     Route: 048
     Dates: start: 20020101, end: 20030101
  2. ATENOLOL [Concomitant]
     Route: 065

REACTIONS (2)
  - HEPATIC CIRRHOSIS [None]
  - PAIN IN EXTREMITY [None]
